FAERS Safety Report 4726871-7 (Version None)
Quarter: 2005Q3

REPORT INFORMATION
  Report Type: 
  Country: None (occurrence: None)
  Receive Date: 20050726
  Receipt Date: 20050712
  Transmission Date: 20060218
  Serious: Yes (Other)
  Sender: FDA-Public Use
  Company Number: WAES 0506USA00495

PATIENT
  Age: 46 Year
  Sex: Female

DRUGS (12)
  1. FOSAMAX [Suspect]
     Indication: OSTEOPOROSIS
     Dosage: 5 MG DAILY; PO
     Route: 048
     Dates: start: 20031124, end: 20040425
  2. FOSAMAX [Suspect]
     Indication: OSTEOPOROSIS
     Dosage: 5 MG DAILY; PO
     Route: 048
     Dates: start: 20040929, end: 20041221
  3. ADALAT [Concomitant]
  4. ARTIST [Concomitant]
  5. CARDENALIN [Concomitant]
  6. COMELIAN [Concomitant]
  7. GASTER [Concomitant]
  8. KINEDAK [Concomitant]
  9. LIPITOR [Concomitant]
  10. CYANOCOBALAMIN [Concomitant]
  11. RENIVACE [Concomitant]
  12. THYRADIN-S [Concomitant]

REACTIONS (8)
  - BLOOD ALBUMIN DECREASED [None]
  - DIABETES MELLITUS INADEQUATE CONTROL [None]
  - DIABETIC NEPHROPATHY [None]
  - HAEMATOCRIT DECREASED [None]
  - HAEMOGLOBIN DECREASED [None]
  - NEPHROTIC SYNDROME [None]
  - PYREXIA [None]
  - WHITE BLOOD CELL COUNT INCREASED [None]
